FAERS Safety Report 7183613-6 (Version None)
Quarter: 2010Q4

REPORT INFORMATION
  Report Type: 
  Country: None (occurrence: None)
  Receive Date: 20101220
  Receipt Date: 20101220
  Transmission Date: 20110411
  Serious: Yes (Hospitalization)
  Sender: FDA-Public Use
  Company Number: None

PATIENT
  Age: 78 Year
  Sex: Male
  Weight: 90.9 kg

DRUGS (14)
  1. COUMADIN [Suspect]
     Indication: ATRIAL FIBRILLATION
     Dosage: 2.5MG T TH ,  5MG MWFSS PO  CHRONIC
     Route: 048
  2. GLIMEPIRIDE [Concomitant]
  3. ALLOPURINOL [Concomitant]
  4. LOSARTAN [Concomitant]
  5. DIGOXIN [Concomitant]
  6. COLACE [Concomitant]
  7. JANUVIA [Concomitant]
  8. TORSEMIDE [Concomitant]
  9. SPIRONOLACTONE [Concomitant]
  10. POTASSIUM CHLORIDE [Concomitant]
  11. QUININE [Concomitant]
  12. CALCITRIOL [Concomitant]
  13. PRAVASTATIN [Concomitant]
  14. LANTUS [Concomitant]

REACTIONS (2)
  - COAGULOPATHY [None]
  - EPISTAXIS [None]
